FAERS Safety Report 4727983-4 (Version None)
Quarter: 2005Q3

REPORT INFORMATION
  Report Type: 
  Country: None (occurrence: None)
  Receive Date: 20050719
  Receipt Date: 20050704
  Transmission Date: 20060218
  Serious: Yes (Hospitalization)
  Sender: FDA-Public Use
  Company Number: MPS1-10402

PATIENT
  Age: 6 Month
  Sex: Female
  Weight: 8.1 kg

DRUGS (2)
  1. ALDURAZYME [Suspect]
     Indication: MUCOPOLYSACCHARIDOSIS I
     Dosage: 1000 UNITS QWK IV
     Route: 042
     Dates: start: 20050407
  2. ACETAMINOPHEN [Concomitant]

REACTIONS (7)
  - BLOOD PRESSURE INCREASED [None]
  - FALL [None]
  - FLOPPY INFANT [None]
  - INFUSION RELATED REACTION [None]
  - OXYGEN SATURATION IMMEASURABLE [None]
  - PALLOR [None]
  - PERIPHERAL COLDNESS [None]
